FAERS Safety Report 15879378 (Version 1)
Quarter: 2019Q1

REPORT INFORMATION
  Report Type: Spontaneous
  Country: US (occurrence: US)
  Receive Date: 20190126
  Receipt Date: 20190126
  Transmission Date: 20190417
  Serious: No
  Sender: FDA-Public Use
  Company Number: None

PATIENT
  Age: 50 Year
  Sex: Female

DRUGS (1)
  1. METRONIDAZOLE TOPICAL CREAM [Suspect]
     Active Substance: METRONIDAZOLE
     Indication: ROSACEA
     Route: 061
     Dates: start: 20180904, end: 20180930

REACTIONS (4)
  - Flushing [None]
  - Perioral dermatitis [None]
  - Rosacea [None]
  - Photosensitivity reaction [None]

NARRATIVE: CASE EVENT DATE: 20180930
